FAERS Safety Report 5430445-2 (Version None)
Quarter: 2007Q3

REPORT INFORMATION
  Report Type: 
  Country: None (occurrence: None)
  Receive Date: 20070828
  Receipt Date: 20070814
  Transmission Date: 20080115
  Serious: Yes (Hospitalization)
  Sender: FDA-Public Use
  Company Number: 15955

PATIENT
  Age: 71 Week
  Sex: Male

DRUGS (13)
  1. CYTARABINE [Suspect]
     Indication: ACUTE MYELOID LEUKAEMIA
     Dosage: 20 MG/M2 PER_CYCLE SC
     Route: 058
     Dates: start: 20061130, end: 20061209
  2. ETAMSILATE [Concomitant]
  3. TRANEXAMIC ACID [Concomitant]
  4. ATORVASTATIN [Concomitant]
  5. PERINDOPRIL ERBUMINE [Concomitant]
  6. OMEPRAZOLE [Concomitant]
  7. CODEINE PHOSPHATE [Concomitant]
  8. AMINOPHYLLINE [Concomitant]
  9. AMIKACIN [Concomitant]
  10. HEVIRAN [Concomitant]
  11. BACTRIM /00086101/. MFR: NOT SPECIFIED [Concomitant]
  12. FLUCONAZOLE [Concomitant]
  13. CIPROFLOXACIN [Concomitant]

REACTIONS (6)
  - ANAEMIA [None]
  - BRONCHOPNEUMONIA [None]
  - DISEASE PROGRESSION [None]
  - GASTROENTERITIS [None]
  - NEUTROPENIA [None]
  - THROMBOCYTOPENIA [None]
